FAERS Safety Report 20649193 (Version 1)
Quarter: 2022Q1

REPORT INFORMATION
  Report Type: Spontaneous
  Country: US (occurrence: US)
  Receive Date: 20220329
  Receipt Date: 20220329
  Transmission Date: 20220423
  Serious: No
  Sender: FDA-Public Use
  Company Number: US-PFIZER INC-2021749571

PATIENT
  Sex: Female

DRUGS (4)
  1. BOSUTINIB [Suspect]
     Active Substance: BOSUTINIB
     Dosage: UNK
  2. DASATINIB [Suspect]
     Active Substance: DASATINIB
     Dosage: UNK
  3. IMATINIB [Suspect]
     Active Substance: IMATINIB
     Dosage: UNK
  4. TASIGNA [Suspect]
     Active Substance: NILOTINIB

REACTIONS (1)
  - Neoplasm progression [Unknown]
